FAERS Safety Report 4649778-2 (Version None)
Quarter: 2005Q2

REPORT INFORMATION
  Report Type: 
  Country: None (occurrence: None)
  Receive Date: 20050427
  Receipt Date: 20050415
  Transmission Date: 20051028
  Serious: Yes (Other)
  Sender: FDA-Public Use
  Company Number: GXKR2005US00921

PATIENT
  Age: 55 Year
  Sex: Male

DRUGS (4)
  1. RIFAMPICIN [Suspect]
     Indication: OSTEOMYELITIS
     Dosage: 600 MG, BID, ORAL
     Route: 048
  2. CITALOPRAM (NGX) (CITALOPRAM) [Suspect]
     Indication: PANIC ATTACK
     Dosage: 60 MG, QD, ORAL
     Route: 048
  3. SULFAMETHOXAZOLE + TRIMETHOPRIM [Concomitant]
  4. CLONAZEPAM [Concomitant]

REACTIONS (7)
  - ABDOMINAL DISCOMFORT [None]
  - CONDITION AGGRAVATED [None]
  - CRYING [None]
  - DRUG INEFFECTIVE [None]
  - DRUG INTERACTION [None]
  - PANIC ATTACK [None]
  - PANIC DISORDER [None]
